FAERS Safety Report 8821134 (Version 2)
Quarter: 2012Q4

REPORT INFORMATION
  Report Type: 
  Country: JP (occurrence: JP)
  Receive Date: 20121002
  Receipt Date: 20121005
  Transmission Date: 20130627
  Serious: Yes (Hospitalization, Other)
  Sender: FDA-Public Use
  Company Number: JP-ROCHE-1101631

PATIENT
  Sex: Female
  Weight: 39 kg

DRUGS (10)
  1. AVASTIN [Suspect]
     Indication: COLON CANCER RECURRENT
     Dosage: 5mg/kg
     Route: 041
     Dates: start: 20071004, end: 201009
  2. AVASTIN [Suspect]
     Indication: COLON CANCER RECURRENT
     Dosage: 5mg/kg
     Route: 041
     Dates: start: 201103, end: 201107
  3. AVASTIN [Suspect]
     Indication: COLON CANCER RECURRENT
     Dosage: 5mg/kg
     Route: 041
     Dates: start: 201107
  4. ELPLAT [Concomitant]
     Indication: COLON CANCER RECURRENT
     Dosage: day1
     Route: 041
     Dates: start: 20070525, end: 20070709
  5. LEVOFOLINATE [Concomitant]
     Indication: COLON CANCER RECURRENT
     Dosage: day1,2
     Route: 041
     Dates: start: 20070525, end: 20070709
  6. LEVOFOLINATE [Concomitant]
     Indication: COLON CANCER RECURRENT
     Route: 041
     Dates: start: 20071004
  7. 5-FU [Concomitant]
     Indication: COLON CANCER RECURRENT
     Dosage: day1,2
     Route: 040
     Dates: start: 20070525, end: 20070709
  8. 5-FU [Concomitant]
     Indication: COLON CANCER RECURRENT
     Route: 041
     Dates: start: 20070525, end: 20070709
  9. 5-FU [Concomitant]
     Indication: COLON CANCER RECURRENT
     Route: 040
     Dates: start: 20071004
  10. ADALAT L [Concomitant]
     Indication: HYPERTENSION
     Route: 048
     Dates: start: 1992

REACTIONS (3)
  - Hypertension [Recovering/Resolving]
  - Proteinuria [Recovering/Resolving]
  - Humerus fracture [Unknown]
